FAERS Safety Report 19215400 (Version 1)
Quarter: 2021Q2

REPORT INFORMATION
  Report Type: Report from Study
  Country: US (occurrence: US)
  Receive Date: 20210504
  Receipt Date: 20210504
  Transmission Date: 20210717
  Serious: Yes (Hospitalization)
  Sender: FDA-Public Use
  Company Number: US-JNJFOC-20210322960

PATIENT
  Sex: Female
  Weight: 48.2 kg

DRUGS (3)
  1. MACITENTAN [Suspect]
     Active Substance: MACITENTAN
     Indication: PULMONARY HYPERTENSION
     Route: 048
  2. AMLODIPINE [Concomitant]
     Active Substance: AMLODIPINE BESYLATE
  3. REMODULIN [Suspect]
     Active Substance: TREPROSTINIL

REACTIONS (4)
  - Catheter site pain [Recovering/Resolving]
  - Catheter site haemorrhage [Recovered/Resolved]
  - Headache [Recovering/Resolving]
  - Hospitalisation [Unknown]
